FAERS Safety Report 20711127 (Version 25)
Quarter: 2022Q4

REPORT INFORMATION
  Report Type: Report from Study
  Country: CA (occurrence: CA)
  Receive Date: 20220414
  Receipt Date: 20221229
  Transmission Date: 20230112
  Serious: Yes (Hospitalization, Other)
  Sender: FDA-Public Use
  Company Number: CA-TAKEDA-2021TUS064336

PATIENT
  Age: 5 Year
  Sex: Male
  Weight: 17.687 kg

DRUGS (25)
  1. VELAGLUCERASE ALFA [Suspect]
     Active Substance: VELAGLUCERASE ALFA
     Indication: Gaucher^s disease
     Dosage: 2 DOSAGE FORM, Q2WEEKS
     Route: 065
     Dates: start: 20210624
  2. VELAGLUCERASE ALFA [Suspect]
     Active Substance: VELAGLUCERASE ALFA
     Dosage: 2 DOSAGE FORM, Q2WEEKS
     Route: 065
     Dates: start: 20210624
  3. VELAGLUCERASE ALFA [Suspect]
     Active Substance: VELAGLUCERASE ALFA
     Dosage: 2 DOSAGE FORM, Q2WEEKS
     Route: 065
     Dates: start: 20210624
  4. VELAGLUCERASE ALFA [Suspect]
     Active Substance: VELAGLUCERASE ALFA
     Dosage: 2 DOSAGE FORM, Q2WEEKS
     Route: 065
     Dates: start: 20210624
  5. VELAGLUCERASE ALFA [Suspect]
     Active Substance: VELAGLUCERASE ALFA
     Dosage: 800 MILLIGRAM, Q2WEEKS
     Route: 050
     Dates: start: 20210624
  6. VELAGLUCERASE ALFA [Suspect]
     Active Substance: VELAGLUCERASE ALFA
     Dosage: 2 DOSAGE FORM, 2/WEEK
     Route: 065
     Dates: start: 20210624
  7. VELAGLUCERASE ALFA [Suspect]
     Active Substance: VELAGLUCERASE ALFA
     Dosage: 800 MILLIGRAM, Q2WEEKS
     Route: 050
     Dates: start: 20210624
  8. VELAGLUCERASE ALFA [Suspect]
     Active Substance: VELAGLUCERASE ALFA
     Dosage: 800 INTERNATIONAL UNIT, Q2WEEKS
     Route: 042
     Dates: start: 20210624
  9. VELAGLUCERASE ALFA [Suspect]
     Active Substance: VELAGLUCERASE ALFA
     Dosage: 2 DOSAGE FORM, Q2WEEKS
     Route: 050
     Dates: start: 20210624
  10. VELAGLUCERASE ALFA [Suspect]
     Active Substance: VELAGLUCERASE ALFA
     Dosage: 800 INTERNATIONAL UNIT, Q2WEEKS
     Route: 065
     Dates: start: 20210624
  11. VELAGLUCERASE ALFA [Suspect]
     Active Substance: VELAGLUCERASE ALFA
     Dosage: UNK
     Route: 065
     Dates: start: 20210624
  12. VELAGLUCERASE ALFA [Suspect]
     Active Substance: VELAGLUCERASE ALFA
     Dosage: 800 INTERNATIONAL UNIT, Q2WEEKS
     Route: 050
     Dates: start: 20210624
  13. VELAGLUCERASE ALFA [Suspect]
     Active Substance: VELAGLUCERASE ALFA
     Dosage: 800 INTERNATIONAL UNIT, Q2WEEKS
     Route: 050
     Dates: start: 20210624
  14. VELAGLUCERASE ALFA [Suspect]
     Active Substance: VELAGLUCERASE ALFA
     Dosage: 800 INTERNATIONAL UNIT, Q2WEEKS
     Route: 050
     Dates: start: 20210624
  15. VELAGLUCERASE ALFA [Suspect]
     Active Substance: VELAGLUCERASE ALFA
     Dosage: 800 INTERNATIONAL UNIT, Q2WEEKS
     Route: 050
     Dates: start: 20210624
  16. VELAGLUCERASE ALFA [Suspect]
     Active Substance: VELAGLUCERASE ALFA
     Dosage: 2 DOSAGE FORM, Q2WEEKS
     Route: 050
     Dates: start: 20210624
  17. VELAGLUCERASE ALFA [Suspect]
     Active Substance: VELAGLUCERASE ALFA
     Dosage: 2 DOSAGE FORM, Q2WEEKS
     Route: 050
     Dates: start: 20210624
  18. VELAGLUCERASE ALFA [Suspect]
     Active Substance: VELAGLUCERASE ALFA
     Dosage: 800 INTERNATIONAL UNIT, Q2WEEKS
     Route: 050
     Dates: start: 20210624
  19. VELAGLUCERASE ALFA [Suspect]
     Active Substance: VELAGLUCERASE ALFA
     Dosage: 2 DOSAGE FORM, Q2WEEKS
     Route: 050
     Dates: start: 20210624
  20. ALBUTEROL [Suspect]
     Active Substance: ALBUTEROL
     Indication: Product used for unknown indication
     Dosage: UNK
     Route: 065
  21. COUGH SYRUP [Suspect]
     Active Substance: DEXTROMETHORPHAN HYDROBROMIDE\GUAIFENESIN
     Indication: Cough
     Dosage: UNK
     Route: 065
  22. KEPPRA [Suspect]
     Active Substance: LEVETIRACETAM
     Indication: Seizure
     Dosage: 1.95 MILLILITER, BID
     Route: 065
  23. KEPPRA [Suspect]
     Active Substance: LEVETIRACETAM
     Dosage: 3 MILLILITER, BID
     Route: 065
  24. BENADRYL [Concomitant]
     Active Substance: DIPHENHYDRAMINE HYDROCHLORIDE
     Indication: Application site reaction
     Dosage: 25 MILLIGRAM
     Route: 048
     Dates: start: 20211104
  25. TYLENOL [Concomitant]
     Active Substance: ACETAMINOPHEN
     Indication: Application site reaction
     Dosage: 270 MILLIGRAM
     Route: 048
     Dates: start: 20211104

REACTIONS (39)
  - Influenza [Not Recovered/Not Resolved]
  - Seizure [Recovered/Resolved]
  - Central nervous system lesion [Unknown]
  - Meningitis [Unknown]
  - Weight increased [Recovered/Resolved]
  - Body temperature increased [Unknown]
  - Urinary incontinence [Unknown]
  - Pneumonia [Not Recovered/Not Resolved]
  - Pneumonia mycoplasmal [Not Recovered/Not Resolved]
  - Epilepsy [Not Recovered/Not Resolved]
  - Cough [Recovering/Resolving]
  - Nausea [Not Recovered/Not Resolved]
  - Bone pain [Not Recovered/Not Resolved]
  - Abdominal pain [Recovered/Resolved]
  - Pharyngitis streptococcal [Not Recovered/Not Resolved]
  - Weight fluctuation [Recovering/Resolving]
  - Illness [Not Recovered/Not Resolved]
  - Swelling face [Not Recovered/Not Resolved]
  - Pallor [Unknown]
  - Psychomotor hyperactivity [Unknown]
  - Skin discolouration [Unknown]
  - Haemoglobin decreased [Not Recovered/Not Resolved]
  - Red blood cell count decreased [Not Recovered/Not Resolved]
  - Haematocrit decreased [Not Recovered/Not Resolved]
  - Blood iron decreased [Not Recovered/Not Resolved]
  - Respiratory rate decreased [Recovered/Resolved]
  - Increased tendency to bruise [Not Recovered/Not Resolved]
  - Poor venous access [Recovered/Resolved]
  - Mood altered [Unknown]
  - Viral infection [Not Recovered/Not Resolved]
  - Weight decreased [Unknown]
  - Productive cough [Not Recovered/Not Resolved]
  - Pain in extremity [Not Recovered/Not Resolved]
  - Irritability [Unknown]
  - Headache [Not Recovered/Not Resolved]
  - Fatigue [Not Recovered/Not Resolved]
  - Drug ineffective [Unknown]
  - Product dose omission issue [Not Recovered/Not Resolved]
  - Inappropriate schedule of product administration [Recovered/Resolved]

NARRATIVE: CASE EVENT DATE: 20211014
